FAERS Safety Report 17438480 (Version 1)
Quarter: 2020Q1

REPORT INFORMATION
  Report Type: Spontaneous
  Country: US (occurrence: US)
  Receive Date: 20200220
  Receipt Date: 20200220
  Transmission Date: 20200409
  Serious: No
  Sender: FDA-Public Use
  Company Number: US-LUPIN PHARMACEUTICALS INC.-2020-00640

PATIENT
  Age: 68 Year
  Sex: Female
  Weight: 79.37 kg

DRUGS (2)
  1. IBUPROFEN. [Concomitant]
     Active Substance: IBUPROFEN
     Indication: PRODUCT USED FOR UNKNOWN INDICATION
     Route: 065
  2. DESOXIMETASONE CREAM USP, 0.05% [Suspect]
     Active Substance: DESOXIMETASONE
     Indication: DERMATITIS
     Dosage: UNK, QD
     Route: 061
     Dates: start: 20200129, end: 20200202

REACTIONS (6)
  - Drug ineffective [Unknown]
  - Application site exfoliation [Recovering/Resolving]
  - Application site erythema [Recovering/Resolving]
  - Application site pruritus [Recovering/Resolving]
  - Application site swelling [Recovering/Resolving]
  - Application site pain [Recovering/Resolving]

NARRATIVE: CASE EVENT DATE: 20200130
